FAERS Safety Report 13390956 (Version 3)
Quarter: 2017Q2

REPORT INFORMATION
  Report Type: Spontaneous
  Country: DE (occurrence: DE)
  Receive Date: 20170331
  Receipt Date: 20170504
  Transmission Date: 20170830
  Serious: Yes (Life-Threatening, Hospitalization, Other)
  Sender: FDA-Public Use
  Company Number: DE-VIIV HEALTHCARE LIMITED-DE2017GSK045085

PATIENT
  Age: 76 Year
  Sex: Male
  Weight: 90 kg

DRUGS (3)
  1. SIMVA HEXAL [Concomitant]
     Active Substance: SIMVASTATIN
     Indication: HYPERTENSION
     Dosage: 20 MG, QD
     Route: 048
  2. RAMIPRIL ISIS [Concomitant]
     Indication: HYPERTENSION
     Dosage: 2.5 MG, BID
     Route: 048
  3. TRIUMEQ [Suspect]
     Active Substance: ABACAVIR SULFATE\DOLUTEGRAVIR SODIUM\LAMIVUDINE
     Indication: HIV INFECTION
     Dosage: 950 MG, QD
     Route: 048
     Dates: start: 201602

REACTIONS (15)
  - Decreased appetite [Recovered/Resolved]
  - Acute myocardial infarction [Not Recovered/Not Resolved]
  - Nausea [Recovered/Resolved]
  - Ventricular hypokinesia [Unknown]
  - Coronary artery disease [Unknown]
  - Troponin increased [Unknown]
  - Hyperhidrosis [Recovered/Resolved]
  - Left ventricular dysfunction [Unknown]
  - Chest discomfort [Recovered/Resolved]
  - Left ventricular hypertrophy [Unknown]
  - Coronary arterial stent insertion [Unknown]
  - Coronary artery occlusion [Recovered/Resolved]
  - Dyspnoea [Recovered/Resolved]
  - Coronary artery stenosis [Recovered/Resolved]
  - Percutaneous coronary intervention [Unknown]

NARRATIVE: CASE EVENT DATE: 201612
